FAERS Safety Report 16164821 (Version 1)
Quarter: 2019Q2

REPORT INFORMATION
  Report Type: Spontaneous
  Country: GR (occurrence: GR)
  Receive Date: 20190405
  Receipt Date: 20190405
  Transmission Date: 20190711
  Serious: Yes (Hospitalization, Other)
  Sender: FDA-Public Use
  Company Number: GR-SA-2019SA087586

PATIENT
  Age: 31 Year
  Sex: Female

DRUGS (3)
  1. RIFAMPICIN + ISONIAZID [Concomitant]
     Indication: TUBERCULIN TEST
  2. FINGOLIMOD. [Concomitant]
     Active Substance: FINGOLIMOD
     Indication: RELAPSING MULTIPLE SCLEROSIS
     Dosage: UPTO APR-16
  3. ALEMTUZUMAB [Suspect]
     Active Substance: ALEMTUZUMAB
     Indication: RELAPSING MULTIPLE SCLEROSIS
     Dosage: UNK
     Route: 065
     Dates: start: 2016

REACTIONS (8)
  - Gait disturbance [Recovered/Resolved]
  - Vertigo CNS origin [Recovered/Resolved]
  - Therapeutic response decreased [Recovered/Resolved]
  - Hemiparesis [Recovered/Resolved]
  - Brain stem syndrome [Recovered/Resolved]
  - Nystagmus [Recovered/Resolved]
  - Diplopia [Recovered/Resolved]
  - Multiple sclerosis relapse [Recovered/Resolved]

NARRATIVE: CASE EVENT DATE: 2016
